FAERS Safety Report 12604454 (Version 1)
Quarter: 2016Q3

REPORT INFORMATION
  Report Type: Spontaneous
  Country: US (occurrence: US)
  Receive Date: 20160728
  Receipt Date: 20160728
  Transmission Date: 20161109
  Serious: No
  Sender: FDA-Public Use
  Company Number: GXBR2015US002549

PATIENT
  Age: 57 Year
  Sex: Female
  Weight: 81.63 kg

DRUGS (5)
  1. HYDROXYCHLOROQUINE SULFATE TABLETS USP [Suspect]
     Active Substance: HYDROXYCHLOROQUINE SULFATE
     Indication: SYSTEMIC LUPUS ERYTHEMATOSUS
     Dosage: 400 MG, QD
     Route: 048
     Dates: start: 20150929
  2. HYDROXYCHLOROQUINE SULFATE TABLETS USP [Suspect]
     Active Substance: HYDROXYCHLOROQUINE SULFATE
     Indication: RHEUMATOID ARTHRITIS
  3. SUMATRIPTAN. [Concomitant]
     Active Substance: SUMATRIPTAN
     Indication: MIGRAINE
     Dosage: UNK DF, PRN
     Route: 065
  4. APAP [Concomitant]
     Active Substance: ACETAMINOPHEN
     Indication: RHEUMATOID ARTHRITIS
     Dosage: UNK DF, PRN
     Route: 065
  5. APAP NIGHT [Concomitant]
     Indication: INSOMNIA
     Dosage: UNK DF, PRN
     Route: 065

REACTIONS (3)
  - Pruritus [Not Recovered/Not Resolved]
  - Diarrhoea [Not Recovered/Not Resolved]
  - Rash papular [Not Recovered/Not Resolved]

NARRATIVE: CASE EVENT DATE: 20150929
